FAERS Safety Report 9455843 (Version 1)
Quarter: 2013Q3

REPORT INFORMATION
  Report Type: Spontaneous
  Country: AU (occurrence: AU)
  Receive Date: 20130813
  Receipt Date: 20130813
  Transmission Date: 20140515
  Serious: Yes (Hospitalization, Other)
  Sender: FDA-Public Use
  Company Number: AU-PFIZER INC-2013233240

PATIENT
  Age: 21 Year
  Sex: Male
  Weight: 80 kg

DRUGS (6)
  1. TAZOCIN EF [Suspect]
     Indication: SEPSIS
     Dosage: 13.5 G, DAILY
     Route: 042
     Dates: start: 20000520, end: 20000606
  2. VANCOMYCIN HYDROCHLORIDE [Suspect]
     Indication: STAPHYLOCOCCAL SEPSIS
     Dosage: 2 G, 1X/DAY
     Route: 042
     Dates: start: 20000520, end: 20000606
  3. FLUCLOXACILLIN SODIUM [Suspect]
     Indication: STAPHYLOCOCCAL SEPSIS
     Dosage: 8 G, DAILY
     Route: 042
     Dates: start: 20000513, end: 20000526
  4. CEFAZOLIN [Concomitant]
  5. TEICOPLANIN [Concomitant]
  6. LINEZOLID [Concomitant]

REACTIONS (4)
  - Angioedema [Recovered/Resolved]
  - Pulmonary oedema [Recovered/Resolved]
  - Tubulointerstitial nephritis [Recovered/Resolved]
  - Eosinophilia [Recovered/Resolved]
